FAERS Safety Report 18123908 (Version 1)
Quarter: 2020Q3

REPORT INFORMATION
  Report Type: Spontaneous
  Country: US (occurrence: US)
  Receive Date: 20200807
  Receipt Date: 20200807
  Transmission Date: 20201103
  Serious: No
  Sender: FDA-Public Use
  Company Number: US-TECHDOW-2020TECHDOW000003

PATIENT
  Age: 57 Year
  Sex: Male
  Weight: 94.3 kg

DRUGS (3)
  1. ASPIRIN. [Concomitant]
     Active Substance: ASPIRIN
  2. CLOPIDOGREL [Concomitant]
     Active Substance: CLOPIDOGREL BISULFATE
  3. HEPARIN SODIUM INJECTION, USP (PARABENS WITH NACL) [Suspect]
     Active Substance: HEPARIN SODIUM
     Dosage: 5000UNIT,AS NEEDED
     Dates: start: 20200131, end: 20200131

REACTIONS (1)
  - Therapeutic product ineffective [Unknown]

NARRATIVE: CASE EVENT DATE: 20200131
